FAERS Safety Report 4593844-7 (Version None)
Quarter: 2005Q1

REPORT INFORMATION
  Report Type: 
  Country: None (occurrence: None)
  Receive Date: 20050301
  Receipt Date: 20050222
  Transmission Date: 20050727
  Serious: Yes (Death)
  Sender: FDA-Public Use
  Company Number: PHBS2005JP02608

PATIENT
  Age: 58 Year

DRUGS (4)
  1. IMATINIB [Suspect]
     Indication: CHRONIC MYELOID LEUKAEMIA
     Dosage: 400 MG/DAY
     Route: 065
     Dates: start: 20040201
  2. IMATINIB [Suspect]
     Dosage: 300 MG/DAY
  3. IMATINIB [Suspect]
     Dosage: 400 MG/DAY
  4. IMATINIB [Suspect]
     Dosage: 800 MG/DAY

REACTIONS (5)
  - BLAST CRISIS IN MYELOGENOUS LEUKAEMIA [None]
  - CHROMOSOME ANALYSIS ABNORMAL [None]
  - CHRONIC MYELOID LEUKAEMIA [None]
  - DRUG RESISTANCE [None]
  - LEUKOPENIA [None]
